FAERS Safety Report 9387062 (Version 1)
Quarter: 2013Q3

REPORT INFORMATION
  Report Type: Spontaneous
  Country: US (occurrence: US)
  Receive Date: 20130708
  Receipt Date: 20130708
  Transmission Date: 20140515
  Serious: Yes (Other)
  Sender: FDA-Public Use
  Company Number: PHHY2013US066949

PATIENT
  Age: 9 Year
  Sex: Male

DRUGS (4)
  1. ATOMOXETINE [Suspect]
     Indication: PSYCHOMOTOR HYPERACTIVITY
     Dosage: 30 MG, PER DAY
  2. ATOMOXETINE [Interacting]
     Dosage: 10 MG, PER DAY
  3. VARENICLINE [Interacting]
     Dosage: 0.5 DF, PER DAY
  4. VARENICLINE [Interacting]
     Dosage: 0.5 MG, PER DAY

REACTIONS (3)
  - Dysthymic disorder [Recovered/Resolved with Sequelae]
  - Drug interaction [Unknown]
  - Dry eye [Unknown]
